FAERS Safety Report 21568658 (Version 1)
Quarter: 2022Q4

REPORT INFORMATION
  Report Type: Spontaneous
  Country: CA (occurrence: CA)
  Receive Date: 20221108
  Receipt Date: 20221108
  Transmission Date: 20230113
  Serious: Yes (Other)
  Sender: FDA-Public Use
  Company Number: CA-TEVA-2022-CA-2823399

PATIENT
  Age: 52 Year
  Sex: Female
  Weight: 98 kg

DRUGS (78)
  1. CARBOPLATIN [Suspect]
     Active Substance: CARBOPLATIN
     Indication: Metastases to liver
     Route: 042
  2. CARBOPLATIN [Suspect]
     Active Substance: CARBOPLATIN
     Indication: Breast cancer metastatic
     Route: 042
  3. CARBOPLATIN [Suspect]
     Active Substance: CARBOPLATIN
     Dosage: THERAPY DURATION 61.0 DAYS
     Route: 065
  4. CARBOPLATIN [Suspect]
     Active Substance: CARBOPLATIN
     Dosage: THERAPY DURATION 61.0 DAYS
     Route: 065
  5. CARBOPLATIN [Suspect]
     Active Substance: CARBOPLATIN
     Dosage: THERAPY DURATION 61.0 DAYS
     Route: 065
  6. CARBOPLATIN [Suspect]
     Active Substance: CARBOPLATIN
     Dosage: THERAPY DURATION 61.0 DAYS
     Route: 065
  7. EPIRUBICIN HYDROCHLORIDE [Suspect]
     Active Substance: EPIRUBICIN HYDROCHLORIDE
     Indication: Breast cancer stage II
     Route: 065
  8. EXEMESTANE [Suspect]
     Active Substance: EXEMESTANE
     Indication: Metastases to liver
     Dosage: THERAPY DURATION 61.0 DAYS
     Route: 065
  9. EXEMESTANE [Suspect]
     Active Substance: EXEMESTANE
     Indication: Breast cancer metastatic
     Dosage: THERAPY DURATION 61.0 DAYS
     Route: 065
  10. EXEMESTANE [Suspect]
     Active Substance: EXEMESTANE
     Dosage: THERAPY DURATION 2.0 MONTHS
     Route: 065
  11. EXEMESTANE [Suspect]
     Active Substance: EXEMESTANE
     Dosage: THERAPY DURATION 2.0 MONTHS
     Route: 065
  12. EXEMESTANE [Suspect]
     Active Substance: EXEMESTANE
     Dosage: THERAPY DURATION 61.0 DAYS
     Route: 065
  13. EXEMESTANE [Suspect]
     Active Substance: EXEMESTANE
     Dosage: THERAPY DURATION 61.0 DAYS
     Route: 065
  14. EXEMESTANE [Suspect]
     Active Substance: EXEMESTANE
     Dosage: THERAPY DURATION 2.0 MONTHS
     Route: 065
  15. EXEMESTANE [Suspect]
     Active Substance: EXEMESTANE
     Dosage: THERAPY DURATION 2.0 MONTHS
     Route: 065
  16. EXEMESTANE [Suspect]
     Active Substance: EXEMESTANE
     Dosage: THERAPY DURATION 2.0 MONTHS
     Route: 065
  17. EXEMESTANE [Suspect]
     Active Substance: EXEMESTANE
     Dosage: THERAPY DURATION 2.0 MONTHS
     Route: 065
  18. LETROZOLE [Suspect]
     Active Substance: LETROZOLE
     Indication: Breast cancer metastatic
     Route: 065
  19. LETROZOLE [Suspect]
     Active Substance: LETROZOLE
     Indication: Metastases to liver
     Route: 065
  20. TAMOXIFEN CITRATE [Suspect]
     Active Substance: TAMOXIFEN CITRATE
     Indication: Metastases to liver
     Route: 065
  21. TAMOXIFEN CITRATE [Suspect]
     Active Substance: TAMOXIFEN CITRATE
     Indication: Breast cancer stage II
     Route: 065
  22. TAMOXIFEN CITRATE [Suspect]
     Active Substance: TAMOXIFEN CITRATE
     Indication: Breast cancer metastatic
     Route: 065
  23. TAMOXIFEN CITRATE [Suspect]
     Active Substance: TAMOXIFEN CITRATE
     Route: 065
  24. TAMOXIFEN CITRATE [Suspect]
     Active Substance: TAMOXIFEN CITRATE
     Route: 065
  25. TAMOXIFEN CITRATE [Suspect]
     Active Substance: TAMOXIFEN CITRATE
     Route: 065
  26. TAMOXIFEN CITRATE [Suspect]
     Active Substance: TAMOXIFEN CITRATE
     Route: 065
  27. TAMOXIFEN CITRATE [Suspect]
     Active Substance: TAMOXIFEN CITRATE
     Route: 065
  28. TAMOXIFEN CITRATE [Suspect]
     Active Substance: TAMOXIFEN CITRATE
     Route: 065
  29. AFINITOR [Suspect]
     Active Substance: EVEROLIMUS
     Indication: Breast cancer metastatic
     Route: 065
  30. AFINITOR [Suspect]
     Active Substance: EVEROLIMUS
     Indication: Metastases to liver
     Dosage: THERAPY DURATION 61.0 DAYS
     Route: 065
  31. AFINITOR [Suspect]
     Active Substance: EVEROLIMUS
     Dosage: THERAPY DURATION 61.0 DAYS
     Route: 065
  32. AFINITOR [Suspect]
     Active Substance: EVEROLIMUS
     Route: 065
  33. AFINITOR [Suspect]
     Active Substance: EVEROLIMUS
     Dosage: THERAPY DURATION 61.0 DAYS
     Route: 065
  34. AFINITOR [Suspect]
     Active Substance: EVEROLIMUS
     Dosage: THERAPY DURATION 61.0 DAYS
     Route: 065
  35. FLUOROURACIL [Suspect]
     Active Substance: FLUOROURACIL
     Indication: Breast cancer stage II
     Route: 065
  36. EPIRUBICIN HYDROCHLORIDE [Suspect]
     Active Substance: EPIRUBICIN HYDROCHLORIDE
     Indication: Breast cancer
     Route: 042
  37. CYCLOPHOSPHAMIDE [Suspect]
     Active Substance: CYCLOPHOSPHAMIDE
     Indication: Breast cancer stage II
     Route: 065
  38. TAXOL [Suspect]
     Active Substance: PACLITAXEL
     Indication: Metastases to liver
     Route: 065
  39. TAXOL [Suspect]
     Active Substance: PACLITAXEL
     Indication: Breast cancer metastatic
     Route: 042
  40. TAXOL [Suspect]
     Active Substance: PACLITAXEL
     Dosage: THERAPY DURATION 244 DAYS
     Route: 065
  41. TAXOL [Suspect]
     Active Substance: PACLITAXEL
     Dosage: THERAPY DURATION 244 DAYS
     Route: 065
  42. TAXOL [Suspect]
     Active Substance: PACLITAXEL
     Route: 065
  43. TAXOL [Suspect]
     Active Substance: PACLITAXEL
     Route: 065
  44. TAXOL [Suspect]
     Active Substance: PACLITAXEL
     Route: 042
  45. TAXOL [Suspect]
     Active Substance: PACLITAXEL
     Route: 042
  46. TAXOL [Suspect]
     Active Substance: PACLITAXEL
     Route: 042
  47. TAXOL [Suspect]
     Active Substance: PACLITAXEL
     Route: 042
  48. TAXOL [Suspect]
     Active Substance: PACLITAXEL
     Route: 042
  49. TAXOL [Suspect]
     Active Substance: PACLITAXEL
     Route: 042
  50. TAXOL [Suspect]
     Active Substance: PACLITAXEL
     Route: 042
  51. TAXOL [Suspect]
     Active Substance: PACLITAXEL
     Route: 042
  52. TAXOL [Suspect]
     Active Substance: PACLITAXEL
     Dosage: THERAPY DURATION 244 DAYS
     Route: 065
  53. TAXOL [Suspect]
     Active Substance: PACLITAXEL
     Dosage: THERAPY DURATION 244 DAYS
     Route: 065
  54. TAXOL [Suspect]
     Active Substance: PACLITAXEL
     Dosage: THERAPY DURATION 244 DAYS
     Route: 065
  55. TAXOL [Suspect]
     Active Substance: PACLITAXEL
     Dosage: THERAPY DURATION 244 DAYS
     Route: 065
  56. TAXOL [Suspect]
     Active Substance: PACLITAXEL
     Dosage: THERAPY DURATION 244 DAYS
     Route: 065
  57. TAXOL [Suspect]
     Active Substance: PACLITAXEL
     Dosage: THERAPY DURATION 244 DAYS
     Route: 065
  58. TAXOL [Suspect]
     Active Substance: PACLITAXEL
     Dosage: THERAPY DURATION 244 DAYS
     Route: 065
  59. TAXOTERE [Suspect]
     Active Substance: DOCETAXEL
     Indication: Breast cancer metastatic
     Route: 065
  60. TAXOTERE [Suspect]
     Active Substance: DOCETAXEL
     Indication: Metastases to liver
     Route: 065
  61. TAXOTERE [Suspect]
     Active Substance: DOCETAXEL
     Route: 042
  62. TAXOTERE [Suspect]
     Active Substance: DOCETAXEL
     Route: 065
  63. TAXOTERE [Suspect]
     Active Substance: DOCETAXEL
     Route: 065
  64. TAXOTERE [Suspect]
     Active Substance: DOCETAXEL
     Route: 042
  65. XELODA [Suspect]
     Active Substance: CAPECITABINE
     Indication: Metastases to liver
     Route: 065
  66. XELODA [Suspect]
     Active Substance: CAPECITABINE
     Indication: Breast cancer metastatic
     Route: 065
  67. XELODA [Suspect]
     Active Substance: CAPECITABINE
     Dosage: THERAPY DURATION 410.0 DAYS
     Route: 065
  68. XELODA [Suspect]
     Active Substance: CAPECITABINE
     Dosage: THERAPY DURATION 410.0 DAYS
     Route: 048
  69. XELODA [Suspect]
     Active Substance: CAPECITABINE
     Dosage: THERAPY DURATION 410.0 DAYS
     Route: 065
  70. XELODA [Suspect]
     Active Substance: CAPECITABINE
     Dosage: THERAPY DURATION 410.0 DAYS
     Route: 048
  71. ACETAMINOPHEN [Concomitant]
     Active Substance: ACETAMINOPHEN
     Indication: Product used for unknown indication
     Dosage: 1000 MILLIGRAM DAILY;
     Route: 048
  72. ACETAMINOPHEN AND CODEINE [Concomitant]
     Active Substance: ACETAMINOPHEN\CODEINE PHOSPHATE
     Indication: Product used for unknown indication
     Route: 048
  73. CANNABIDIOL [Concomitant]
     Active Substance: CANNABIDIOL
     Indication: Product used for unknown indication
     Route: 048
  74. HYDROCHLOROTHIAZIDE [Concomitant]
     Active Substance: HYDROCHLOROTHIAZIDE
     Indication: Product used for unknown indication
     Dosage: 25 MILLIGRAM DAILY;
     Route: 048
  75. HYDROMORPHONE [Concomitant]
     Active Substance: HYDROMORPHONE
     Indication: Product used for unknown indication
     Route: 048
  76. MAGNESIUM [Concomitant]
     Active Substance: MAGNESIUM
     Indication: Product used for unknown indication
     Dosage: 750 MILLIGRAM DAILY;
     Route: 048
  77. OLMESARTAN MEDOXOMIL [Concomitant]
     Active Substance: OLMESARTAN MEDOXOMIL
     Indication: Product used for unknown indication
     Route: 048
  78. RIVAROXABAN [Concomitant]
     Active Substance: RIVAROXABAN
     Indication: Product used for unknown indication
     Dosage: 15 MILLIGRAM DAILY;
     Route: 048

REACTIONS (18)
  - Asthma [Unknown]
  - Breast cancer metastatic [Unknown]
  - Chest pain [Unknown]
  - Device related thrombosis [Unknown]
  - Diarrhoea [Unknown]
  - Drug hypersensitivity [Unknown]
  - Metastases to bone [Unknown]
  - Metastases to liver [Unknown]
  - Nail disorder [Unknown]
  - Nausea [Unknown]
  - Neoplasm progression [Unknown]
  - Neuropathy peripheral [Unknown]
  - Paraesthesia [Unknown]
  - Rash [Unknown]
  - Skin exfoliation [Unknown]
  - Vomiting [Unknown]
  - Heart rate irregular [Unknown]
  - Drug ineffective [Unknown]
